FAERS Safety Report 9580107 (Version 1)
Quarter: 2013Q3

REPORT INFORMATION
  Report Type: Spontaneous
  Country: US (occurrence: None)
  Receive Date: 20130930
  Receipt Date: 20130930
  Transmission Date: 20140515
  Serious: Yes (Other)
  Sender: FDA-Public Use
  Company Number: None

PATIENT
  Age: 63 Year
  Sex: Male
  Weight: 78.02 kg

DRUGS (1)
  1. XARELTO [Suspect]
     Indication: POSTOPERATIVE THROMBOSIS
     Dates: start: 20130801, end: 20130928

REACTIONS (1)
  - Periarthritis [None]
